FAERS Safety Report 7019994-3 (Version None)
Quarter: 2010Q3

REPORT INFORMATION
  Report Type: 
  Country: None (occurrence: None)
  Receive Date: 20100929
  Receipt Date: 20100916
  Transmission Date: 20110219
  Serious: Yes (Other)
  Sender: FDA-Public Use
  Company Number: US-CELGENEUS-163-21880-10091718

PATIENT
  Sex: Male

DRUGS (2)
  1. REVLIMID [Suspect]
     Route: 048
     Dates: start: 20070401
  2. REVLIMID [Suspect]
     Route: 048
     Dates: start: 20070801, end: 20100801

REACTIONS (1)
  - SKIN CANCER [None]
